FAERS Safety Report 7004829-5 (Version None)
Quarter: 2010Q3

REPORT INFORMATION
  Report Type: 
  Country: None (occurrence: None)
  Receive Date: 20100917
  Receipt Date: 20100903
  Transmission Date: 20110219
  Serious: Yes (Hospitalization)
  Sender: FDA-Public Use
  Company Number: 1000014190

PATIENT
  Sex: Male

DRUGS (1)
  1. ESCITALOPRAM [Suspect]
     Dosage: 20 MG 920 MG, 1 IN 1 D), ORAL
     Route: 048

REACTIONS (4)
  - ERYTHEMA INDURATUM [None]
  - EYE DISORDER [None]
  - EYE SWELLING [None]
  - SKIN PLAQUE [None]
